FAERS Safety Report 7779344-1 (Version None)
Quarter: 2011Q3

REPORT INFORMATION
  Report Type: 
  Country: None (occurrence: None)
  Receive Date: 20110926
  Receipt Date: 20090905
  Transmission Date: 20111222
  Serious: Yes (Death)
  Sender: FDA-Public Use
  Company Number: PHHY2011TW47904

PATIENT
  Sex: Male

DRUGS (3)
  1. GLEEVEC [Suspect]
     Indication: CHRONIC MYELOID LEUKAEMIA
     Dosage: 300 MG, UNK
     Route: 048
  2. GLEEVEC [Suspect]
     Dosage: 2 PILLS IN THE MORNING AND EVENING
  3. GLEEVEC [Suspect]
     Dosage: 400 MG, BID

REACTIONS (3)
  - DEPRESSION [None]
  - PALLOR [None]
  - MULTI-ORGAN FAILURE [None]
